FAERS Safety Report 24010632 (Version 1)
Quarter: 2024Q2

REPORT INFORMATION
  Report Type: Spontaneous
  Country: US (occurrence: US)
  Receive Date: 20240625
  Receipt Date: 20240625
  Transmission Date: 20240716
  Serious: No
  Sender: FDA-Public Use
  Company Number: US-AMRYT PHARMACEUTICALS DAC-AEGR007065

PATIENT
  Age: 54 Year
  Sex: Female
  Weight: 65.986 kg

DRUGS (2)
  1. FILSUVEZ [Suspect]
     Active Substance: BIRCH TRITERPENES
     Indication: Epidermolysis bullosa
     Dosage: 10% W/W GEL (23.4 G), APPLY A 1 MM LAYER TO AFFECTED WOUND SURFACE(S) AT EACH DRESSING CHANGE
     Route: 061
     Dates: start: 20240406
  2. FILSUVEZ [Suspect]
     Active Substance: BIRCH TRITERPENES
     Dosage: 10% W/W GEL (23.4 G), APPLY A 1 MM LAYER TO AFFECTED WOUND SURFACE(S) AT EACH DRESSING CHANGE
     Route: 061
     Dates: start: 20240404

REACTIONS (3)
  - Wound complication [Unknown]
  - Intentional product use issue [Unknown]
  - Product residue present [Unknown]

NARRATIVE: CASE EVENT DATE: 20240406
